FAERS Safety Report 9501359 (Version 1)
Quarter: 2013Q1

REPORT INFORMATION
  Report Type: Spontaneous
  Country: US (occurrence: None)
  Receive Date: 20130122
  Receipt Date: 20130122
  Transmission Date: 20140127
  Serious: Yes (Other)
  Sender: FDA-Public Use
  Company Number: 2011110132

PATIENT
  Age: 58 Year
  Sex: Male
  Weight: 87.09 kg

DRUGS (3)
  1. MUSE [Suspect]
     Indication: ERECTILE DYSFUNCTION
     Dosage: 1000 MCG, AS REQUIRED)
     Route: 066
     Dates: start: 20111120
  2. TACROLIMUS (TACROLIMUS) [Concomitant]
  3. CELLCEPT (MYCOPHENOLATE) [Concomitant]

REACTIONS (1)
  - Priapism [None]
